FAERS Safety Report 6709694-9 (Version None)
Quarter: 2010Q2

REPORT INFORMATION
  Report Type: 
  Country: None (occurrence: None)
  Receive Date: 20100504
  Receipt Date: 20100422
  Transmission Date: 20101027
  Serious: Yes (Other)
  Sender: FDA-Public Use
  Company Number: US-PFIZER INC-2010051365

PATIENT
  Sex: Male
  Weight: 88.435 kg

DRUGS (4)
  1. VIAGRA [Suspect]
     Indication: ERECTILE DYSFUNCTION
     Dosage: 50 MG, 1X/DAY
     Dates: start: 20100419, end: 20100419
  2. MULTI-VITAMINS [Concomitant]
     Dosage: UNK
  3. VITAMIN D [Concomitant]
     Dosage: UNK
  4. NICOTINAMIDE [Concomitant]
     Dosage: UNK

REACTIONS (9)
  - HEADACHE [None]
  - LIP SWELLING [None]
  - PAIN IN EXTREMITY [None]
  - PRURITUS [None]
  - PRURITUS GENITAL [None]
  - RASH MACULAR [None]
  - SKIN SWELLING [None]
  - SWELLING FACE [None]
  - TESTICULAR SWELLING [None]
